FAERS Safety Report 9867169 (Version 1)
Quarter: 2014Q1

REPORT INFORMATION
  Report Type: Spontaneous
  Country: US (occurrence: None)
  Receive Date: 20140203
  Receipt Date: 20140203
  Transmission Date: 20141002
  Serious: No
  Sender: FDA-Public Use
  Company Number: None

PATIENT
  Age: 52 Year
  Sex: Female

DRUGS (1)
  1. COPAXONE [Suspect]
     Dates: start: 20100406

REACTIONS (11)
  - Injection site reaction [None]
  - Injection site mass [None]
  - Injection site pruritus [None]
  - Injection site erythema [None]
  - Dyspnoea [None]
  - Myalgia [None]
  - Muscle spasms [None]
  - Muscle spasms [None]
  - Feeling cold [None]
  - Tremor [None]
  - Wrong technique in drug usage process [None]
